FAERS Safety Report 4951615-3 (Version None)
Quarter: 2006Q1

REPORT INFORMATION
  Report Type: 
  Country: None (occurrence: None)
  Receive Date: 20060317
  Receipt Date: 20060306
  Transmission Date: 20060701
  Serious: Yes (Other)
  Sender: FDA-Public Use
  Company Number: 2006005712

PATIENT
  Age: 51 Year
  Sex: Female
  Weight: 70.7611 kg

DRUGS (9)
  1. LIPITOR [Suspect]
     Indication: BLOOD CHOLESTEROL INCREASED
     Dosage: 10 MG (10 MG, 1 IN 1 D),
     Dates: start: 20051001, end: 20060107
  2. PREDNISONE TAB [Concomitant]
  3. PROGRAF [Concomitant]
  4. NEXIUM [Concomitant]
  5. CELLCEPT [Concomitant]
  6. ATENOLOL [Concomitant]
  7. HYZAAR [Concomitant]
  8. CALCIUM (CALCIUM) [Concomitant]
  9. VITAMINS (VITAMINS) [Concomitant]

REACTIONS (5)
  - BLOOD CREATININE INCREASED [None]
  - CHEST DISCOMFORT [None]
  - COUGH [None]
  - SWELLING [None]
  - WHEEZING [None]
